FAERS Safety Report 16662048 (Version 1)
Quarter: 2019Q3

REPORT INFORMATION
  Report Type: Spontaneous
  Country: US (occurrence: US)
  Receive Date: 20190802
  Receipt Date: 20190802
  Transmission Date: 20191004
  Serious: Yes (Hospitalization)
  Sender: FDA-Public Use
  Company Number: None

PATIENT
  Sex: Female

DRUGS (6)
  1. FERROUS SULF [Concomitant]
     Active Substance: FERROUS SULFATE
  2. LOPERAMIDE [Concomitant]
     Active Substance: LOPERAMIDE
  3. CYPROHEPTAD [Concomitant]
  4. POLYETH GLYC POW [Concomitant]
  5. OMNITROPE [Suspect]
     Active Substance: SOMATROPIN
     Indication: BODY HEIGHT BELOW NORMAL
     Route: 058
     Dates: start: 20190122
  6. VITAMIN D3 [Concomitant]
     Active Substance: CHOLECALCIFEROL

REACTIONS (2)
  - Abdominal pain [None]
  - Therapy cessation [None]
